FAERS Safety Report 10791773 (Version 1)
Quarter: 2015Q1

REPORT INFORMATION
  Report Type: Spontaneous
  Country: US (occurrence: US)
  Receive Date: 20150213
  Receipt Date: 20150213
  Transmission Date: 20150721
  Serious: No
  Sender: FDA-Public Use
  Company Number: US-GLAXOSMITHKLINE-A1090985A

PATIENT

DRUGS (1)
  1. LAMICTAL [Suspect]
     Active Substance: LAMOTRIGINE
     Indication: NERVE INJURY
     Route: 048
     Dates: start: 20140820, end: 20140823

REACTIONS (2)
  - Pruritus [Recovered/Resolved]
  - Urticaria [Unknown]
